FAERS Safety Report 4441962-6 (Version None)
Quarter: 2004Q3

REPORT INFORMATION
  Report Type: 
  Country: None (occurrence: None)
  Receive Date: 20040907
  Receipt Date: 20040610
  Transmission Date: 20050211
  Serious: Yes (Hospitalization)
  Sender: FDA-Public Use
  Company Number: JP-GLAXOSMITHKLINE-B0335359A

PATIENT
  Age: 63 Year
  Sex: Female
  Weight: 79 kg

DRUGS (4)
  1. PAXIL [Suspect]
     Indication: BIPOLAR I DISORDER
     Route: 048
     Dates: start: 20040304, end: 20040528
  2. SIMVASTATIN [Suspect]
     Dosage: 20MG PER DAY
     Route: 048
     Dates: start: 20020101, end: 20040528
  3. PURSENNID [Suspect]
     Indication: CONSTIPATION
     Dosage: 12MG THREE TIMES PER DAY
     Route: 048
     Dates: start: 20030110, end: 20040616
  4. LOXONIN [Concomitant]
     Indication: HEADACHE
     Dosage: 60MG PER DAY
     Route: 048
     Dates: start: 20040108, end: 20040602

REACTIONS (10)
  - AGEUSIA [None]
  - EATING DISORDER [None]
  - GLOSSODYNIA [None]
  - HYPERAESTHESIA [None]
  - INSOMNIA [None]
  - ORAL PAIN [None]
  - PHARYNGEAL OEDEMA [None]
  - SPEECH DISORDER [None]
  - STOMATITIS [None]
  - SWOLLEN TONGUE [None]
